FAERS Safety Report 6536672-5 (Version None)
Quarter: 2010Q1

REPORT INFORMATION
  Report Type: 
  Country: None (occurrence: None)
  Receive Date: 20100106
  Receipt Date: 20091223
  Transmission Date: 20100710
  Serious: Yes (Hospitalization)
  Sender: FDA-Public Use
  Company Number: 2009SP043155

PATIENT
  Age: 15 Month
  Sex: Male

DRUGS (1)
  1. COPPERTONE KIDS (COPPERTONE     (ACTIVES UNKNOWN)) [Suspect]
     Indication: DRUG USE FOR UNKNOWN INDICATION
     Route: 061

REACTIONS (2)
  - LOSS OF CONSCIOUSNESS [None]
  - RASH [None]
